FAERS Safety Report 4346557-0 (Version None)
Quarter: 2004Q2

REPORT INFORMATION
  Report Type: 
  Country: None (occurrence: None)
  Receive Date: 20040426
  Receipt Date: 20040129
  Transmission Date: 20050107
  Serious: No
  Sender: FDA-Public Use
  Company Number: US-BRISTOL-MYERS SQUIBB COMPANY-12491668

PATIENT
  Age: 40 Year
  Sex: Male

DRUGS (9)
  1. CARBOPLATIN [Suspect]
     Indication: NASAL CAVITY CANCER
     Dosage: SECOND EXPIRATION DATE: 30-APR-2005
     Route: 042
     Dates: start: 20040121, end: 20040121
  2. DECADRON [Concomitant]
     Indication: PREMEDICATION
     Route: 042
     Dates: start: 20040121, end: 20040121
  3. ANZEMET [Concomitant]
     Indication: PREMEDICATION
     Route: 042
     Dates: start: 20040128, end: 20040128
  4. XANAX [Concomitant]
  5. SALAGEN [Concomitant]
  6. HYDROCODONE [Concomitant]
  7. ZOMETA [Concomitant]
  8. PROVIGIL [Concomitant]
  9. ALOXI [Concomitant]
     Indication: PROPHYLAXIS OF NAUSEA AND VOMITING
     Route: 042
     Dates: start: 20040121, end: 20040121

REACTIONS (1)
  - HYPERSENSITIVITY [None]
